FAERS Safety Report 6147294-2 (Version None)
Quarter: 2009Q2

REPORT INFORMATION
  Report Type: 
  Country: None (occurrence: None)
  Receive Date: 20090408
  Receipt Date: 20090327
  Transmission Date: 20091009
  Serious: Yes (Other)
  Sender: FDA-Public Use
  Company Number: US-JNJFOC-20090307560

PATIENT
  Sex: Male

DRUGS (4)
  1. REMICADE [Suspect]
     Indication: ANKYLOSING SPONDYLITIS
     Route: 042
  2. REMICADE [Suspect]
     Indication: RHEUMATOID ARTHRITIS
     Route: 042
  3. INDOMETHACIN [Suspect]
     Indication: PAIN
  4. ANTI-REACTION DRUGS [Concomitant]

REACTIONS (2)
  - RENAL TRANSPLANT [None]
  - RHEUMATOID ARTHRITIS [None]
